FAERS Safety Report 15288016 (Version 11)
Quarter: 2019Q3

REPORT INFORMATION
  Report Type: Spontaneous
  Country: US (occurrence: US)
  Receive Date: 20180817
  Receipt Date: 20190709
  Transmission Date: 20191004
  Serious: No
  Sender: FDA-Public Use
  Company Number: US-PFIZER INC-2018330611

PATIENT
  Age: 61 Year
  Sex: Female
  Weight: 60 kg

DRUGS (33)
  1. CEFTRIAXONE SODIUM. [Suspect]
     Active Substance: CEFTRIAXONE SODIUM
     Dosage: UNK
  2. CYCLOBENZAPRINE. [Concomitant]
     Active Substance: CYCLOBENZAPRINE
     Dosage: UNK
  3. VANCOMYCIN [Concomitant]
     Active Substance: VANCOMYCIN
     Dosage: UNK
  4. MILK THISTLE [Concomitant]
     Active Substance: DIETARY SUPPLEMENT\HERBALS\MILK THISTLE
     Dosage: 1 DF, 1X/DAY
     Route: 048
  5. EXCEDRIN [Concomitant]
     Active Substance: ACETAMINOPHEN\ASPIRIN\CAFFEINE
     Dosage: 1 DF, AS NEEDED (EVERY 6 HOURS)
     Route: 048
  6. MELATONIN [Concomitant]
     Active Substance: MELATONIN
     Dosage: 4 DF, 1X/DAY
     Route: 048
  7. PROPRANOLOL HCL [Concomitant]
     Active Substance: PROPRANOLOL HYDROCHLORIDE
     Dosage: (1 IN MORNING, 1 IN NOON, AND 1/2 TAB IN NIGHT)
     Route: 048
  8. CYCLOBENZAPRINE HCL [Concomitant]
     Active Substance: CYCLOBENZAPRINE HYDROCHLORIDE
     Dosage: 1 DF, 3X/DAY
     Route: 048
  9. CEFTRIAXONE SODIUM. [Suspect]
     Active Substance: CEFTRIAXONE SODIUM
     Indication: SEPSIS
     Dosage: UNK
     Dates: start: 201805
  10. PROPRANOLOL 3MM [Concomitant]
     Indication: MIGRAINE
     Dosage: UNK
  11. BENADRYL 24 D [Concomitant]
     Active Substance: LORATADINE\PSEUDOEPHEDRINE SULFATE
     Indication: HYPERSENSITIVITY
     Dosage: UNK
  12. NP THYROID [Concomitant]
     Active Substance: LEVOTHYROXINE\LIOTHYRONINE
     Dosage: 1 DF, 1X/DAY
     Route: 048
  13. COQ 10 [Concomitant]
     Active Substance: UBIDECARENONE
     Dosage: 1 DF, 1X/DAY (1CAPSULE WITH A MEAL, ONCE A DAY)
     Route: 048
  14. FISH OIL [Concomitant]
     Active Substance: FISH OIL
     Dosage: 1 DF, 1X/DAY
     Route: 048
  15. INDERAL [Concomitant]
     Active Substance: PROPRANOLOL HYDROCHLORIDE
     Indication: BLOOD PRESSURE ABNORMAL
  16. NP THYROID [Concomitant]
     Active Substance: LEVOTHYROXINE\LIOTHYRONINE
     Dosage: 1 DF, 1X/DAY
     Route: 048
  17. L-CARNITINE [Concomitant]
     Active Substance: LEVOCARNITINE
     Dosage: 1 DF, 1X/DAY
     Route: 048
  18. MAGNESIUM [Concomitant]
     Active Substance: MAGNESIUM
     Dosage: 1 DF, 2X/DAY
     Route: 048
  19. CEFTRIAXONE SODIUM. [Suspect]
     Active Substance: CEFTRIAXONE SODIUM
     Dosage: UNK
  20. INDERAL [Concomitant]
     Active Substance: PROPRANOLOL HYDROCHLORIDE
     Indication: MIGRAINE
     Dosage: UNK
  21. ASPIRIN. [Concomitant]
     Active Substance: ASPIRIN
     Dosage: 1X/DAY (1-3 TABS)
     Route: 048
  22. CALCIUM CITRATE + D [Concomitant]
     Active Substance: CALCIUM CITRATE\CHOLECALCIFEROL
     Dosage: 1 DF, 2X/DAY
     Route: 048
  23. PROPRANOLOL 3MM [Concomitant]
     Indication: BLOOD PRESSURE ABNORMAL
  24. VITAMIN B12 [Concomitant]
     Active Substance: CYANOCOBALAMIN
     Dosage: 1 DF, 1X/DAY
     Route: 048
  25. VITAMIN D [Concomitant]
     Active Substance: VITAMIN D NOS
     Dosage: 1 DF, 1X/DAY
     Route: 048
  26. BENTYL [Concomitant]
     Active Substance: DICYCLOMINE HYDROCHLORIDE
     Dosage: 1 DF, AS NEEDED (4 TIMES)
     Route: 048
  27. CEFTRIAXONE SODIUM. [Suspect]
     Active Substance: CEFTRIAXONE SODIUM
     Dosage: UNK
  28. ZANTAC [Concomitant]
     Active Substance: RANITIDINE HYDROCHLORIDE
     Dosage: 1 DF, 1X/DAY
     Route: 048
  29. FOLIC ACID. [Concomitant]
     Active Substance: FOLIC ACID
     Dosage: 1 DF, 1X/DAY
     Route: 048
  30. TURMERIC CURCUMIN [Concomitant]
     Active Substance: HERBALS\TURMERIC
     Dosage: 1 DF, 1X/DAY
     Route: 048
  31. CEFTRIAXONE SODIUM. [Suspect]
     Active Substance: CEFTRIAXONE SODIUM
     Indication: LIVER ABSCESS
     Dosage: UNK
  32. GINKOBA [Concomitant]
     Active Substance: GINKGO
     Dosage: 1 DF, 1X/DAY
     Route: 048
  33. RESVERATROL [Concomitant]
     Active Substance: DIETARY SUPPLEMENT\RESVERATROL
     Dosage: 1 DF, 2X/DAY
     Route: 048

REACTIONS (5)
  - Condition aggravated [Recovering/Resolving]
  - Alopecia [Recovering/Resolving]
  - Emotional disorder [Unknown]
  - Speech disorder [Unknown]
  - Malaise [Unknown]

NARRATIVE: CASE EVENT DATE: 201806
